FAERS Safety Report 12591819 (Version 1)
Quarter: 2016Q3

REPORT INFORMATION
  Report Type: Spontaneous
  Country: US (occurrence: None)
  Receive Date: 20160725
  Receipt Date: 20160725
  Transmission Date: 20161109
  Serious: Yes (Disabling, Other)
  Sender: FDA-Public Use
  Company Number: None

PATIENT
  Age: 29 Year
  Sex: Female
  Weight: 63.5 kg

DRUGS (1)
  1. METOCLOPROMIDE [Suspect]
     Active Substance: METOCLOPRAMIDE
     Indication: NAUSEA
     Dosage: FOUR TIMES A DAY IN VEIN AT ER IN IV AND BY TABLET
     Dates: start: 20160610, end: 20160612

REACTIONS (7)
  - Depression [None]
  - Palpitations [None]
  - Panic attack [None]
  - Electrolyte imbalance [None]
  - Mood swings [None]
  - Ventricular extrasystoles [None]
  - Diarrhoea [None]

NARRATIVE: CASE EVENT DATE: 20160610
